FAERS Safety Report 19233122 (Version 2)
Quarter: 2021Q3

REPORT INFORMATION
  Report Type: Report from Study
  Country: US (occurrence: US)
  Receive Date: 20210507
  Receipt Date: 20210810
  Transmission Date: 20211014
  Serious: Yes (Other)
  Sender: FDA-Public Use
  Company Number: US-GW PHARMA-202104USGW02219

PATIENT

DRUGS (2)
  1. EPIDIOLEX [Suspect]
     Active Substance: CANNABIDIOL
     Indication: PRODUCT USED FOR UNKNOWN INDICATION
     Dosage: 17.49 MG/KG/DAY, 510 MILLIGRAM, BID
     Route: 048
     Dates: end: 202104
  2. EPIDIOLEX [Suspect]
     Active Substance: CANNABIDIOL
     Dosage: 18.87 MG/KG/DAY, 550 MILLIGRAM, BID
     Route: 048
     Dates: start: 20210422

REACTIONS (1)
  - Myoclonic epilepsy [Recovering/Resolving]
